FAERS Safety Report 9424455 (Version 1)
Quarter: 2013Q3

REPORT INFORMATION
  Report Type: Spontaneous
  Country: US (occurrence: US)
  Receive Date: 20130729
  Receipt Date: 20130729
  Transmission Date: 20140515
  Serious: No
  Sender: FDA-Public Use
  Company Number: US-MYLANLABS-2013S1009822

PATIENT
  Age: 70 Year
  Sex: Female
  Weight: 63.05 kg

DRUGS (3)
  1. VENLAFAXINE HYDROCHLORIDE TABLETS [Suspect]
     Indication: DEPRESSION
  2. JANUVIA [Concomitant]
     Indication: DIABETES MELLITUS
     Route: 048
  3. SYNTHROID [Concomitant]
     Indication: THYROID DISORDER
     Route: 048

REACTIONS (8)
  - Joint arthroplasty [Unknown]
  - Palpitations [Recovering/Resolving]
  - Somnolence [Not Recovered/Not Resolved]
  - Night sweats [Not Recovered/Not Resolved]
  - Hyperhidrosis [Recovering/Resolving]
  - Anxiety [Not Recovered/Not Resolved]
  - Hot flush [Recovering/Resolving]
  - Unevaluable event [Not Recovered/Not Resolved]
